FAERS Safety Report 10865294 (Version 1)
Quarter: 2015Q1

REPORT INFORMATION
  Report Type: Report from Study
  Country: US (occurrence: US)
  Receive Date: 20150224
  Receipt Date: 20150224
  Transmission Date: 20150721
  Serious: No
  Sender: FDA-Public Use
  Company Number: US-MYLANLABS-2014M1007407

PATIENT
  Age: 32 Year
  Sex: Male
  Weight: 112.47 kg

DRUGS (2)
  1. AMNESTEEM [Suspect]
     Active Substance: ISOTRETINOIN
     Indication: SKIN DISORDER
     Dosage: 80 MG, QD
     Route: 048
     Dates: start: 201404, end: 201409
  2. AMNESTEEM [Suspect]
     Active Substance: ISOTRETINOIN
     Indication: OFF LABEL USE

REACTIONS (1)
  - Night blindness [Recovered/Resolved]

NARRATIVE: CASE EVENT DATE: 201409
